FAERS Safety Report 8276285-0 (Version None)
Quarter: 2012Q2

REPORT INFORMATION
  Report Type: 
  Country: None (occurrence: None)
  Receive Date: 20120412
  Receipt Date: 20120411
  Transmission Date: 20120825
  Serious: Yes (Death, Other)
  Sender: FDA-Public Use
  Company Number: PHHY2011AU58290

PATIENT
  Sex: Female

DRUGS (7)
  1. WARFARIN SODIUM [Concomitant]
  2. ALDACTONE [Concomitant]
  3. LASIX [Concomitant]
     Indication: CARDIAC FAILURE CHRONIC
  4. DURAGESIC-100 [Concomitant]
  5. DIGOXIN [Concomitant]
  6. ZOLEDRONOC ACID [Suspect]
     Dosage: 5 MG, UNK
     Route: 042
     Dates: start: 20100203
  7. AMIODARONE HCL [Concomitant]

REACTIONS (10)
  - PNEUMONIA [None]
  - CARDIAC FAILURE [None]
  - LOSS OF CONSCIOUSNESS [None]
  - CONFUSIONAL STATE [None]
  - TACHYPNOEA [None]
  - DYSPNOEA [None]
  - RALES [None]
  - CARDIAC FAILURE CHRONIC [None]
  - OEDEMA [None]
  - ATRIAL FIBRILLATION [None]
